FAERS Safety Report 17197517 (Version 2)
Quarter: 2020Q1

REPORT INFORMATION
  Report Type: Report from Study
  Country: GR (occurrence: GR)
  Receive Date: 20191224
  Receipt Date: 20200113
  Transmission Date: 20200409
  Serious: Yes (Other)
  Sender: FDA-Public Use
  Company Number: GR-BAUSCH-BL-2019-065384

PATIENT
  Sex: Female
  Weight: 52 kg

DRUGS (4)
  1. ZOLEDRONIC ACID [Concomitant]
     Active Substance: ZOLEDRONIC ACID
     Indication: PRODUCT USED FOR UNKNOWN INDICATION
     Route: 065
  2. VELCADE [Suspect]
     Active Substance: BORTEZOMIB
     Indication: PLASMA CELL MYELOMA
     Route: 058
     Dates: start: 20160606
  3. MELPHALAN. [Suspect]
     Active Substance: MELPHALAN
     Indication: PLASMA CELL MYELOMA
     Route: 048
     Dates: start: 20160606, end: 20170508
  4. PREDNISOLONE. [Suspect]
     Active Substance: PREDNISOLONE
     Indication: PLASMA CELL MYELOMA
     Route: 048
     Dates: start: 20160606, end: 20170511

REACTIONS (8)
  - Influenza like illness [Recovered/Resolved]
  - Viral infection [Recovered/Resolved]
  - Angina pectoris [Recovered/Resolved]
  - Palpitations [Recovered/Resolved]
  - Herpes virus infection [Recovered/Resolved]
  - Platelet count decreased [Recovered/Resolved]
  - Bone pain [Not Recovered/Not Resolved]
  - Cough [Recovering/Resolving]

NARRATIVE: CASE EVENT DATE: 20161205
